FAERS Safety Report 21783821 (Version 4)
Quarter: 2023Q2

REPORT INFORMATION
  Report Type: Spontaneous
  Country: CA (occurrence: CA)
  Receive Date: 20221227
  Receipt Date: 20230414
  Transmission Date: 20230722
  Serious: Yes (Hospitalization, Other)
  Sender: FDA-Public Use
  Company Number: CA-PFIZER INC-2018444638

PATIENT
  Age: 66 Year
  Sex: Female

DRUGS (4)
  1. XELJANZ XR [Suspect]
     Active Substance: TOFACITINIB CITRATE
     Indication: Rheumatoid arthritis
     Dosage: 11 MG, 1X/DAY
     Route: 048
     Dates: start: 20181019, end: 202012
  2. XELJANZ XR [Suspect]
     Active Substance: TOFACITINIB CITRATE
     Dosage: 11 MG, 1X/DAY
     Route: 048
     Dates: end: 2022
  3. ARAVA [Concomitant]
     Active Substance: LEFLUNOMIDE
     Dosage: 20 MG, 1X/DAY
     Route: 065
  4. LEFLUNOMIDE [Concomitant]
     Active Substance: LEFLUNOMIDE
     Dosage: 20 MG, 1X/DAY

REACTIONS (11)
  - Spinal fusion surgery [Unknown]
  - Post procedural infection [Not Recovered/Not Resolved]
  - Wound [Not Recovered/Not Resolved]
  - Pneumonia [Unknown]
  - Therapeutic product effect incomplete [Not Recovered/Not Resolved]
  - Abdominal discomfort [Unknown]
  - Discomfort [Unknown]
  - Musculoskeletal stiffness [Recovering/Resolving]
  - Pain [Unknown]
  - Fatigue [Unknown]
  - Sensitivity to weather change [Unknown]

NARRATIVE: CASE EVENT DATE: 20221201
